FAERS Safety Report 7867709-9 (Version None)
Quarter: 2011Q4

REPORT INFORMATION
  Report Type: 
  Country: None (occurrence: None)
  Receive Date: 20111028
  Receipt Date: 20111024
  Transmission Date: 20120403
  Serious: Yes (Hospitalization)
  Sender: FDA-Public Use
  Company Number: US-ABBOTT-11P-163-0868295-00

PATIENT
  Sex: Female
  Weight: 40.86 kg

DRUGS (12)
  1. LOVAZA [Concomitant]
  2. MS CONTIN [Concomitant]
     Indication: FIBROMYALGIA
  3. CREON [Suspect]
     Dosage: TAKES TWO 24000 UNITS, WITH MEALS
     Route: 048
  4. OXYCONTIN [Concomitant]
     Indication: PAIN
  5. CREON [Suspect]
     Indication: PANCREATITIS CHRONIC
     Dosage: 1 EVERY 4 HRS,WITH MEALS, EATS 6 X DAILY
     Route: 048
  6. LOVAZA [Concomitant]
  7. LOVAZA [Concomitant]
     Indication: MYOCARDIAL INFARCTION
  8. VALIUM [Concomitant]
     Indication: PRODUCT USED FOR UNKNOWN INDICATION
  9. CREON [Suspect]
     Dosage: 1 EVERY 4 HRS,WITH MEALS, EATS 6 X DAILY
     Route: 048
  10. CREON [Suspect]
     Dosage: 1 EVERY 4 HRS,WITH MEALS, EATS 6 X DAILY
     Route: 048
  11. LOVAZA [Concomitant]
     Indication: CEREBROVASCULAR ACCIDENT
  12. OXYCONTIN [Concomitant]
     Indication: FIBROMYALGIA

REACTIONS (7)
  - HEPATIC STEATOSIS [None]
  - FAECES HARD [None]
  - ANOREXIA NERVOSA [None]
  - OCULAR ICTERUS [None]
  - FAECES DISCOLOURED [None]
  - COMA [None]
  - PANCREATITIS CHRONIC [None]
